FAERS Safety Report 6443543-1 (Version None)
Quarter: 2009Q4

REPORT INFORMATION
  Report Type: 
  Country: None (occurrence: None)
  Receive Date: 20091117
  Receipt Date: 20091014
  Transmission Date: 20100525
  Serious: No
  Sender: FDA-Public Use
  Company Number: US-BAYER-200915708BCC

PATIENT
  Age: 59 Year
  Sex: Female
  Weight: 74 kg

DRUGS (8)
  1. ASPIRIN [Suspect]
     Indication: DRUG USE FOR UNKNOWN INDICATION
     Dosage: TOTAL DAILY DOSE: 81 MG  UNIT DOSE: 81 MG
     Route: 048
     Dates: start: 20090401
  2. ALEVE [Suspect]
     Indication: PAIN
     Dosage: TOTAL DAILY DOSE: 220 MG  UNIT DOSE: 220 MG
     Route: 048
     Dates: start: 20090401
  3. TOPROL-XL [Concomitant]
     Route: 065
  4. SKELAXIN [Concomitant]
     Route: 065
  5. REMERON [Concomitant]
     Route: 065
  6. CLONAZEPAM [Concomitant]
     Route: 065
  7. HYDROXYZINE [Concomitant]
     Route: 065
  8. NASONEX [Concomitant]
     Route: 065

REACTIONS (3)
  - ALOPECIA [None]
  - DIARRHOEA [None]
  - OEDEMA PERIPHERAL [None]
